FAERS Safety Report 5955546-1 (Version None)
Quarter: 2008Q4

REPORT INFORMATION
  Report Type: 
  Country: None (occurrence: None)
  Receive Date: 20081117
  Receipt Date: 20081107
  Transmission Date: 20090506
  Serious: Yes (Other)
  Sender: FDA-Public Use
  Company Number: US-PFIZER INC-2008058158

PATIENT
  Sex: Female
  Weight: 75.909 kg

DRUGS (3)
  1. CHANTIX [Suspect]
     Indication: SMOKING CESSATION THERAPY
     Route: 048
     Dates: start: 20080510
  2. PAXIL CR [Concomitant]
     Indication: DEPRESSION
  3. TOPROL-XL [Concomitant]
     Indication: HYPERTENSION
     Dosage: TEXT:EVERYDAY

REACTIONS (9)
  - AMNESIA [None]
  - BLOOD PRESSURE INCREASED [None]
  - CONFUSIONAL STATE [None]
  - EMOTIONAL DISORDER [None]
  - MEDICATION ERROR [None]
  - NICOTINE DEPENDENCE [None]
  - NIGHTMARE [None]
  - TEARFULNESS [None]
  - THINKING ABNORMAL [None]
